FAERS Safety Report 6215154-4 (Version None)
Quarter: 2009Q2

REPORT INFORMATION
  Report Type: 
  Country: None (occurrence: None)
  Receive Date: 20090604
  Receipt Date: 20090604
  Transmission Date: 20091009
  Serious: Yes (Other)
  Sender: FDA-Public Use
  Company Number: US-PFIZER INC-2008151822

PATIENT
  Sex: Male
  Weight: 113 kg

DRUGS (3)
  1. ZOLOFT [Suspect]
     Indication: OBSESSIVE-COMPULSIVE DISORDER
     Dosage: 50 MG, 1X/DAY
  2. ZOLOFT [Suspect]
     Indication: ANXIETY
  3. VITAMINS [Concomitant]

REACTIONS (9)
  - ANXIETY [None]
  - BALANCE DISORDER [None]
  - DIARRHOEA [None]
  - IMPAIRED DRIVING ABILITY [None]
  - OBSESSIVE-COMPULSIVE DISORDER [None]
  - PROSTATITIS [None]
  - SINUS DISORDER [None]
  - VISION BLURRED [None]
  - VISUAL IMPAIRMENT [None]
